FAERS Safety Report 5124675-7 (Version None)
Quarter: 2006Q4

REPORT INFORMATION
  Report Type: 
  Country: None (occurrence: None)
  Receive Date: 20061011
  Receipt Date: 20060928
  Transmission Date: 20070319
  Serious: Yes (Other)
  Sender: FDA-Public Use
  Company Number: HQWYE348128SEP06

PATIENT
  Sex: Female
  Weight: 54 kg

DRUGS (4)
  1. ENBREL [Suspect]
     Indication: JUVENILE ARTHRITIS
     Route: 058
     Dates: start: 20050101, end: 20060707
  2. ENBREL [Suspect]
     Route: 058
     Dates: start: 20060701
  3. TOLECTIN [Concomitant]
     Dosage: 1X1 WHEN IT IS NEEDED
     Route: 048
  4. PREDNISONE TAB [Concomitant]
     Dosage: 4 MG SINCE 2003
     Route: 048

REACTIONS (6)
  - ARTHRALGIA [None]
  - BLOOD IRON DECREASED [None]
  - CONDITION AGGRAVATED [None]
  - HAEMOGLOBIN DECREASED [None]
  - RED BLOOD CELL COUNT DECREASED [None]
  - SERUM FERRITIN DECREASED [None]
